FAERS Safety Report 17336378 (Version 2)
Quarter: 2020Q1

REPORT INFORMATION
  Report Type: Report from Study
  Country: IL (occurrence: IL)
  Receive Date: 20200129
  Receipt Date: 20200313
  Transmission Date: 20200409
  Serious: Yes (Other)
  Sender: FDA-Public Use
  Company Number: IL-ROCHE-2528554

PATIENT
  Age: 66 Year
  Sex: Female

DRUGS (7)
  1. BACLOSAL [Concomitant]
     Active Substance: BACLOFEN
  2. CLONEX [CLONAZEPAM] [Concomitant]
     Active Substance: CLONAZEPAM
  3. OCREVUS [Suspect]
     Active Substance: OCRELIZUMAB
     Indication: RELAPSING-REMITTING MULTIPLE SCLEROSIS
     Route: 042
     Dates: start: 20180709
  4. ELIQUIS [Concomitant]
     Active Substance: APIXABAN
  5. FOLIC ACID. [Concomitant]
     Active Substance: FOLIC ACID
  6. LIPITOR [Concomitant]
     Active Substance: ATORVASTATIN CALCIUM
  7. CARDILOC [Concomitant]
     Active Substance: BISOPROLOL FUMARATE

REACTIONS (3)
  - Pyrexia [Recovered/Resolved]
  - Muscle spasticity [Recovered/Resolved]
  - Cellulitis [Recovered/Resolved]

NARRATIVE: CASE EVENT DATE: 20200117
